FAERS Safety Report 14342570 (Version 1)
Quarter: 2018Q1

REPORT INFORMATION
  Report Type: Spontaneous
  Country: US (occurrence: US)
  Receive Date: 20180102
  Receipt Date: 20180102
  Transmission Date: 20180509
  Serious: Yes (Hospitalization)
  Sender: FDA-Public Use
  Company Number: US-BAYER-2017-208566

PATIENT
  Age: 68 Year
  Sex: Male
  Weight: 54.43 kg

DRUGS (6)
  1. ACETYLSALICYLIC ACID({=100 MG) [Suspect]
     Active Substance: ASPIRIN
     Indication: PERIPHERAL VASCULAR DISORDER
     Dosage: 81 MG, QD
     Route: 048
     Dates: start: 201611, end: 201612
  2. XARELTO [Suspect]
     Active Substance: RIVAROXABAN
     Indication: DEEP VEIN THROMBOSIS
     Dosage: 10 MG, QD
     Route: 048
     Dates: start: 20161128, end: 201612
  3. PLAVIX [Suspect]
     Active Substance: CLOPIDOGREL BISULFATE
     Indication: PERIPHERAL VASCULAR DISORDER
     Dosage: 75 MG, QD
     Route: 048
     Dates: start: 201606, end: 201612
  4. XARELTO [Suspect]
     Active Substance: RIVAROXABAN
     Indication: PULMONARY EMBOLISM
  5. ACETYLSALICYLIC ACID (} 100 MG) [Suspect]
     Active Substance: ASPIRIN
     Indication: PERIPHERAL VASCULAR DISORDER
     Dosage: 325 MG, QD
     Route: 048
     Dates: start: 201606, end: 201611
  6. LOVENOX [Suspect]
     Active Substance: ENOXAPARIN SODIUM
     Indication: THROMBOSIS PROPHYLAXIS
     Dosage: 0.3 ML, QD
     Dates: start: 201611, end: 201612

REACTIONS (4)
  - Product use issue [Unknown]
  - Off label use [Unknown]
  - Rectal haemorrhage [Recovering/Resolving]
  - Gastrointestinal haemorrhage [Recovering/Resolving]

NARRATIVE: CASE EVENT DATE: 20161128
